FAERS Safety Report 8573578-4 (Version None)
Quarter: 2012Q3

REPORT INFORMATION
  Report Type: 
  Country: None (occurrence: None)
  Receive Date: 20120806
  Receipt Date: 20120730
  Transmission Date: 20120928
  Serious: Yes (Hospitalization)
  Sender: FDA-Public Use
  Company Number: US-B.I. PHARMACEUTICALS,INC./RIDGEFIELD-2012-BP-14954BP

PATIENT
  Sex: Female
  Weight: 57.61 kg

DRUGS (1)
  1. PRADAXA [Suspect]
     Indication: ATRIAL FIBRILLATION
     Dosage: 300 MG
     Route: 048
     Dates: start: 20111001, end: 20120620

REACTIONS (4)
  - VISION BLURRED [None]
  - CEREBROVASCULAR ACCIDENT [None]
  - CEREBELLAR ARTERY OCCLUSION [None]
  - DIZZINESS [None]
